FAERS Safety Report 19455044 (Version 5)
Quarter: 2023Q1

REPORT INFORMATION
  Report Type: Report from Study
  Country: US (occurrence: US)
  Receive Date: 20210623
  Receipt Date: 20230323
  Transmission Date: 20230417
  Serious: Yes (Hospitalization, Other)
  Sender: FDA-Public Use
  Company Number: US-JAZZ-2020-US-016687

PATIENT
  Sex: Male

DRUGS (4)
  1. XYREM [Suspect]
     Active Substance: SODIUM OXYBATE
     Indication: Fibromyalgia
     Dosage: 2 GRAM, BID
     Route: 048
     Dates: start: 200707, end: 200710
  2. XYREM [Suspect]
     Active Substance: SODIUM OXYBATE
     Dosage: DOSE ADJUSTMENT
     Route: 048
     Dates: start: 200710, end: 201507
  3. XYREM [Suspect]
     Active Substance: SODIUM OXYBATE
     Dosage: 4.5 GRAM, BID
     Route: 048
     Dates: start: 201507
  4. SEROTONIN [Suspect]
     Active Substance: SEROTONIN
     Indication: Product used for unknown indication

REACTIONS (8)
  - Post procedural infection [Recovering/Resolving]
  - Aortic dilatation [Unknown]
  - Endocarditis [Unknown]
  - Catheterisation cardiac [Unknown]
  - Hyponatraemia [Not Recovered/Not Resolved]
  - Blood chloride decreased [Not Recovered/Not Resolved]
  - Fluid retention [Unknown]
  - Blood pressure increased [Recovering/Resolving]

NARRATIVE: CASE EVENT DATE: 20210101
